FAERS Safety Report 18901140 (Version 1)
Quarter: 2021Q1

REPORT INFORMATION
  Report Type: Spontaneous
  Country: US (occurrence: US)
  Receive Date: 20210216
  Receipt Date: 20210216
  Transmission Date: 20210420
  Serious: No
  Sender: FDA-Public Use
  Company Number: US-PFIZER INC-2021145242

PATIENT
  Age: 52 Year
  Sex: Male
  Weight: 81.19 kg

DRUGS (1)
  1. BUPIVACAINE HCL [Suspect]
     Active Substance: BUPIVACAINE HYDROCHLORIDE
     Indication: SPINAL ANAESTHESIA
     Dosage: UNK (CALLER ASSUMES THIS WAS 1 AMPULE OF 0.75% BUPIVACAINE WITH DEXTROSE 8.25% SPINAL INJECTION)
     Dates: start: 20210201, end: 20210201

REACTIONS (1)
  - Drug ineffective [Unknown]

NARRATIVE: CASE EVENT DATE: 20210201
